FAERS Safety Report 8610423-2 (Version None)
Quarter: 2012Q3

REPORT INFORMATION
  Report Type: 
  Country: None (occurrence: None)
  Receive Date: 20120822
  Receipt Date: 20120818
  Transmission Date: 20120928
  Serious: No
  Sender: FDA-Public Use
  Company Number: US-PFIZER INC-2012203451

PATIENT
  Sex: Female

DRUGS (1)
  1. ALPRAZOLAM [Suspect]
     Dosage: 0.25 MG, UNK
     Dates: start: 20120701, end: 20120813

REACTIONS (2)
  - INSOMNIA [None]
  - WITHDRAWAL SYNDROME [None]
